FAERS Safety Report 19040624 (Version 4)
Quarter: 2021Q2

REPORT INFORMATION
  Report Type: Spontaneous
  Country: US (occurrence: US)
  Receive Date: 20210322
  Receipt Date: 20210630
  Transmission Date: 20210717
  Serious: No
  Sender: FDA-Public Use
  Company Number: US-BEH-2021129673

PATIENT
  Age: 21 Year
  Sex: Male

DRUGS (2)
  1. HIZENTRA [Suspect]
     Active Substance: HUMAN IMMUNOGLOBULIN G
     Indication: IMMUNODEFICIENCY
     Dosage: 10 GRAM, QW, 3 NEEDLE SITES, 17 ML/SITE
     Route: 058
     Dates: start: 201708
  2. HIZENTRA [Suspect]
     Active Substance: HUMAN IMMUNOGLOBULIN G
     Dosage: 10 GRAM, TOT
     Route: 058
     Dates: start: 20210312, end: 20210312

REACTIONS (6)
  - Infusion site pruritus [Recovered/Resolved]
  - Infusion site erythema [Recovered/Resolved]
  - Infusion site warmth [Recovered/Resolved]
  - Recalled product administered [Recovered/Resolved]
  - Infusion site erythema [Unknown]
  - Infusion site pruritus [Unknown]

NARRATIVE: CASE EVENT DATE: 20210312
